FAERS Safety Report 6403145-X (Version None)
Quarter: 2009Q4

REPORT INFORMATION
  Report Type: 
  Country: None (occurrence: None)
  Receive Date: 20091015
  Receipt Date: 20091015
  Transmission Date: 20100525
  Serious: Yes (Disabling, Other)
  Sender: FDA-Public Use
  Company Number: None

PATIENT
  Sex: Male
  Weight: 74.8435 kg

DRUGS (3)
  1. TREATMENT 16OZ. EACH , ACNE.ORG, DANIEL KERN INC. SAN FRAN, CA 94114 [Suspect]
     Indication: ACNE
     Dosage: 3 STEP ^REGIME^ (DAILY) 2X A DAY
     Dates: start: 20090515, end: 20090810
  2. CLEANSER, ACNE.ORG, DANIEL KERN, INC. [Suspect]
     Indication: ACNE
     Dosage: 3 STEP ^REGIME^ (DAILY) 2X A DAY
     Dates: start: 20090515, end: 20090810
  3. MOISTURIZER, ACNE.ORG, DANIEL KERN, INC.SAN FRANCISCO, CA. [Suspect]
     Indication: ACNE
     Dosage: 3 STEP ^REGIME^ (DAILY) 2X A DAY
     Dates: start: 20090515, end: 20090810

REACTIONS (4)
  - ACNE CYSTIC [None]
  - DRUG INEFFECTIVE [None]
  - PRODUCT CONTAMINATION [None]
  - SCAR [None]
